FAERS Safety Report 9867399 (Version 1)
Quarter: 2014Q1

REPORT INFORMATION
  Report Type: Report from Study
  Country: JP (occurrence: JP)
  Receive Date: 20140204
  Receipt Date: 20140204
  Transmission Date: 20141002
  Serious: Yes (Death)
  Sender: FDA-Public Use
  Company Number: JP-CUBIST PHARMACEUTICAL, INC.-2014CBST000116

PATIENT
  Sex: 0

DRUGS (6)
  1. CUBICIN [Suspect]
     Indication: STAPHYLOCOCCAL SEPSIS
     Dosage: 6 MG/KG, ONCE DAILY
     Route: 041
     Dates: start: 20131203, end: 20131204
  2. CUBICIN [Suspect]
     Indication: OFF LABEL USE
  3. CEFEPIME DIHYDROCHLORIDE HYDRATE [Concomitant]
     Indication: STAPHYLOCOCCAL SEPSIS
     Dosage: 4 G, QD
     Route: 042
     Dates: start: 20131122, end: 20131204
  4. NORADRENALINE                      /00127501/ [Concomitant]
     Indication: STAPHYLOCOCCAL SEPSIS
     Dosage: 12 MG, ONCE DAILY
     Route: 042
     Dates: start: 20131126, end: 20131204
  5. PROPOFOL [Concomitant]
     Indication: STAPHYLOCOCCAL SEPSIS
     Dosage: 6 G, ONCE DAILY
     Route: 042
     Dates: start: 20131126, end: 20131204
  6. FENTANYL CITRATE [Concomitant]
     Indication: STAPHYLOCOCCAL SEPSIS
     Dosage: 1.5 MG, ONCE DAILY
     Route: 042
     Dates: start: 20131126, end: 20131204

REACTIONS (1)
  - Death [Fatal]
